FAERS Safety Report 24216967 (Version 1)
Quarter: 2024Q3

REPORT INFORMATION
  Report Type: Report from Study
  Country: DE (occurrence: DE)
  Receive Date: 20240816
  Receipt Date: 20240816
  Transmission Date: 20241017
  Serious: Yes (Hospitalization, Other)
  Sender: RANBAXY
  Company Number: DE-SUN PHARMACEUTICAL INDUSTRIES LTD-2024R1-444444

PATIENT
  Age: 37 Year
  Sex: Female

DRUGS (19)
  1. GABAPENTIN [Suspect]
     Active Substance: GABAPENTIN
     Indication: Major depression
     Dosage: UNK (UP TO 3200 M/DAY)
     Route: 065
  2. GABAPENTIN [Suspect]
     Active Substance: GABAPENTIN
     Indication: Self-destructive behaviour
  3. OLANZAPINE [Suspect]
     Active Substance: OLANZAPINE
     Indication: Depression
     Dosage: 5 MILLIGRAM, DAILY
     Route: 065
  4. OLANZAPINE [Suspect]
     Active Substance: OLANZAPINE
     Indication: Injury
     Dosage: 6 MILLIGRAM, DAILY
     Route: 065
  5. VENLAFAXINE [Suspect]
     Active Substance: VENLAFAXINE HYDROCHLORIDE
     Indication: Depression
     Dosage: 300 MILLIGRAM, DAILY
     Route: 065
  6. VENLAFAXINE [Suspect]
     Active Substance: VENLAFAXINE HYDROCHLORIDE
     Indication: Injury
     Dosage: 150 MILLIGRAM, DAILY
     Route: 065
  7. LORAZEPAM [Suspect]
     Active Substance: LORAZEPAM
     Indication: Depression
     Dosage: 6 MILLIGRAM, DAILY
     Route: 065
  8. LORAZEPAM [Suspect]
     Active Substance: LORAZEPAM
     Indication: Injury
     Dosage: 4 MILLIGRAM, DAILY
     Route: 065
  9. LORAZEPAM [Suspect]
     Active Substance: LORAZEPAM
     Dosage: 2 MILLIGRAM, DAILY
     Route: 065
  10. QUETIAPINE [Suspect]
     Active Substance: QUETIAPINE
     Indication: Depression
     Dosage: 250 MILLIGRAM, DAILY
     Route: 065
  11. QUETIAPINE [Suspect]
     Active Substance: QUETIAPINE
     Indication: Injury
     Dosage: 125 MILLIGRAM, DAILY
     Route: 065
  12. LAMOTRIGINE [Interacting]
     Active Substance: LAMOTRIGINE
     Indication: Self-destructive behaviour
     Dosage: 150 MILLIGRAM, DAILY
     Route: 065
  13. LAMOTRIGINE [Interacting]
     Active Substance: LAMOTRIGINE
     Indication: Major depression
  14. CHLORPROTHIXENE [Interacting]
     Active Substance: CHLORPROTHIXENE
     Indication: Self-destructive behaviour
     Dosage: 450 MILLIGRAM, DAILY
     Route: 048
  15. CHLORPROTHIXENE [Interacting]
     Active Substance: CHLORPROTHIXENE
     Indication: Major depression
  16. AMITRIPTYLINE [Concomitant]
     Active Substance: AMITRIPTYLINE
     Indication: Self-destructive behaviour
     Dosage: 200 MILLIGRAM, DAILY
     Route: 065
  17. AMITRIPTYLINE [Concomitant]
     Active Substance: AMITRIPTYLINE
     Indication: Major depression
  18. FLUPENTIXOL [Concomitant]
     Active Substance: FLUPENTIXOL
     Indication: Major depression
     Dosage: UNK (UP TO 18 MG/DAY)
     Route: 065
  19. FLUPENTIXOL [Concomitant]
     Active Substance: FLUPENTIXOL
     Indication: Self-destructive behaviour

REACTIONS (2)
  - Drug ineffective [Unknown]
  - Somnolence [Unknown]
